FAERS Safety Report 10746607 (Version 1)
Quarter: 2015Q1

REPORT INFORMATION
  Report Type: Spontaneous
  Country: FR (occurrence: FR)
  Receive Date: 20150128
  Receipt Date: 20150128
  Transmission Date: 20150721
  Serious: Yes (Life-Threatening, Other)
  Sender: FDA-Public Use
  Company Number: FR-GLAXOSMITHKLINE-FR2015GSK009927

PATIENT
  Age: 87 Year
  Sex: Female

DRUGS (15)
  1. IMOVANE [Concomitant]
     Active Substance: ZOPICLONE
  2. APROVEL [Concomitant]
     Active Substance: IRBESARTAN
  3. CALCIPARINE [Concomitant]
     Active Substance: HEPARIN CALCIUM
  4. SPASFON [Concomitant]
     Active Substance: PHLOROGLUCINOL
  5. ORAMORPH SR SUSTAINED RELEASE [Concomitant]
     Active Substance: MORPHINE SULFATE
  6. ZOPHREN [Suspect]
     Active Substance: ONDANSETRON
     Indication: PREMEDICATION
     Dosage: UNK
     Route: 042
     Dates: start: 201308, end: 20131217
  7. SERESTA [Concomitant]
     Active Substance: OXAZEPAM
  8. NEORECORMON [Concomitant]
     Active Substance: ERYTHROPOIETIN
  9. GAVISCON [Concomitant]
     Active Substance: ALUMINUM HYDROXIDE\MAGNESIUM CARBONATE
  10. TAXOL [Concomitant]
     Active Substance: PACLITAXEL
     Indication: METASTASES TO PERITONEUM
  11. TEMERIT [Concomitant]
     Active Substance: NEBIVOLOL
     Dosage: UNK
  12. PRIMPERAN [Concomitant]
     Active Substance: METOCLOPRAMIDE HYDROCHLORIDE
  13. CARBOPLATIN. [Concomitant]
     Active Substance: CARBOPLATIN
     Indication: METASTASES TO PERITONEUM
  14. TIORFAN [Concomitant]
     Active Substance: RACECADOTRIL
  15. SOLU-MEDROL [Concomitant]
     Active Substance: METHYLPREDNISOLONE SODIUM SUCCINATE
     Indication: PREMEDICATION
     Dosage: UNK
     Dates: start: 201308

REACTIONS (1)
  - Type I hypersensitivity [Recovered/Resolved]

NARRATIVE: CASE EVENT DATE: 20131217
